FAERS Safety Report 8283499-2 (Version None)
Quarter: 2012Q2

REPORT INFORMATION
  Report Type: 
  Country: None (occurrence: None)
  Receive Date: 20120413
  Receipt Date: 20120411
  Transmission Date: 20120825
  Serious: Yes (Other)
  Sender: FDA-Public Use
  Company Number: PHHY2011US72006

PATIENT
  Age: 42 Year
  Sex: Female

DRUGS (4)
  1. VALPROIC ACID [Interacting]
     Dosage: 250 MG, BID
  2. WARFARIN SODIUM [Interacting]
     Dosage: 2.5 MG, UNK
  3. LAMOTRGINE [Concomitant]
     Dosage: 150 MG/DAY
  4. VALPROIC ACID [Suspect]
     Indication: BIPOLAR DISORDER
     Dosage: 1000 MG/DAY

REACTIONS (2)
  - DRUG INTERACTION [None]
  - INTERNATIONAL NORMALISED RATIO INCREASED [None]
